FAERS Safety Report 24891432 (Version 1)
Quarter: 2025Q1

REPORT INFORMATION
  Report Type: Spontaneous
  Country: US (occurrence: US)
  Receive Date: 20250127
  Receipt Date: 20250127
  Transmission Date: 20250408
  Serious: No
  Sender: PFIZER
  Company Number: US-PFIZER INC-202500018283

PATIENT
  Age: 12 Year
  Sex: Male

DRUGS (2)
  1. TOFACITINIB CITRATE [Suspect]
     Active Substance: TOFACITINIB CITRATE
     Route: 048
  2. LITFULO [Concomitant]
     Active Substance: RITLECITINIB TOSYLATE
     Dosage: 50 MG, DAILY
     Route: 048

REACTIONS (2)
  - Alopecia areata [Unknown]
  - Condition aggravated [Unknown]
